FAERS Safety Report 8484065-6 (Version None)
Quarter: 2012Q3

REPORT INFORMATION
  Report Type: 
  Country: None (occurrence: None)
  Receive Date: 20120703
  Receipt Date: 20120628
  Transmission Date: 20120928
  Serious: No
  Sender: FDA-Public Use
  Company Number: US-PFIZER INC-2012155844

PATIENT
  Sex: Male

DRUGS (1)
  1. FLAGYL [Suspect]
     Dosage: UNK

REACTIONS (5)
  - COORDINATION ABNORMAL [None]
  - ANXIETY [None]
  - INSOMNIA [None]
  - CONFUSIONAL STATE [None]
  - DIZZINESS [None]
